FAERS Safety Report 24710644 (Version 1)
Quarter: 2024Q4

REPORT INFORMATION
  Report Type: Spontaneous
  Country: JP (occurrence: JP)
  Receive Date: 20241209
  Receipt Date: 20241209
  Transmission Date: 20250114
  Serious: Yes (Other)
  Sender: JOHNSON AND JOHNSON
  Company Number: JP-JNJFOC-20240665557

PATIENT
  Age: 80 Year
  Sex: Female

DRUGS (7)
  1. SELEXIPAG [Suspect]
     Active Substance: SELEXIPAG
     Indication: Pulmonary hypertension
     Route: 048
     Dates: start: 20240426, end: 202405
  2. SELEXIPAG [Suspect]
     Active Substance: SELEXIPAG
     Route: 048
     Dates: start: 202405, end: 2024
  3. SELEXIPAG [Suspect]
     Active Substance: SELEXIPAG
     Dosage: REDUCED DOSE, 0.4 MG AFTER BREAKFAST (0.2 MG 2 TABLETS), 0.2 MG AFTER DINNER
     Route: 048
     Dates: start: 202406, end: 2024
  4. SELEXIPAG [Suspect]
     Active Substance: SELEXIPAG
     Dosage: REDUCED DOSE, 0.4 MG AFTER BREAKFAST (0.2 MG 2 TABLETS), 0.2 MG AFTER DINNER
     Route: 048
     Dates: start: 2024, end: 2024
  5. SELEXIPAG [Suspect]
     Active Substance: SELEXIPAG
     Dosage: REDUCED DOSE, 0.4 MG AFTER BREAKFAST (0.2 MG 2 TABLETS), 0.2 MG AFTER DINNER
     Route: 048
     Dates: start: 2024
  6. ADEMPAS [Concomitant]
     Active Substance: RIOCIGUAT
     Indication: Pulmonary hypertension
     Dosage: UNKNOWN
     Route: 048
  7. WARFARIN [Concomitant]
     Active Substance: WARFARIN
     Dosage: UNKNOWN
     Route: 048

REACTIONS (9)
  - Loss of consciousness [Recovered/Resolved]
  - Pain in jaw [Not Recovered/Not Resolved]
  - Pain in extremity [Not Recovered/Not Resolved]
  - Malaise [Not Recovered/Not Resolved]
  - Dizziness postural [Not Recovered/Not Resolved]
  - Abdominal pain [Not Recovered/Not Resolved]
  - Diarrhoea [Not Recovered/Not Resolved]
  - Oedema peripheral [Not Recovered/Not Resolved]
  - Pancreatic cyst [Not Recovered/Not Resolved]

NARRATIVE: CASE EVENT DATE: 20240101
